FAERS Safety Report 6771304-2 (Version None)
Quarter: 2010Q2

REPORT INFORMATION
  Report Type: 
  Country: None (occurrence: None)
  Receive Date: 20100616
  Receipt Date: 20100610
  Transmission Date: 20101027
  Serious: Yes (Other)
  Sender: FDA-Public Use
  Company Number: JP-SANOFI-AVENTIS-2010SA032265

PATIENT
  Age: 0 Day
  Sex: Female
  Weight: 4.02 kg

DRUGS (6)
  1. APIDRA [Suspect]
     Dosage: DOSE:12 UNIT(S)
     Route: 064
     Dates: start: 20100208
  2. FERROUS SULFATE TAB [Concomitant]
     Route: 064
     Dates: start: 20100201, end: 20100315
  3. AZITHROMYCIN [Concomitant]
     Route: 064
     Dates: start: 20100206
  4. RITODRINE HYDROCHLORIDE [Concomitant]
     Dosage: 100MG-200MG
     Route: 064
     Dates: start: 20100209, end: 20100214
  5. UTEMERIN [Concomitant]
     Route: 064
     Dates: start: 20100201, end: 20100209
  6. CINAL [Concomitant]
     Route: 064
     Dates: start: 20100201, end: 20100315

REACTIONS (1)
  - NO ADVERSE EVENT [None]
